FAERS Safety Report 9361867 (Version 2)
Quarter: 2014Q1

REPORT INFORMATION
  Report Type: Spontaneous
  Country: US (occurrence: US)
  Receive Date: 20130621
  Receipt Date: 20140129
  Transmission Date: 20141002
  Serious: Yes (Hospitalization)
  Sender: FDA-Public Use
  Company Number: US-GLAXOSMITHKLINE-A1027505A

PATIENT
  Age: 61 Year
  Sex: Male

DRUGS (5)
  1. RYTHMOL IR [Suspect]
     Indication: PRODUCT USED FOR UNKNOWN INDICATION
     Dosage: 150MG THREE TIMES PER DAY
     Route: 065
     Dates: start: 20090121
  2. CLONAZEPAM [Concomitant]
  3. CYMBALTA [Concomitant]
  4. WARFARIN [Concomitant]
  5. DURAGESIC [Concomitant]

REACTIONS (3)
  - Lung neoplasm malignant [Not Recovered/Not Resolved]
  - Myocardial infarction [Not Recovered/Not Resolved]
  - Atrial fibrillation [Not Recovered/Not Resolved]
